FAERS Safety Report 6811921-4 (Version None)
Quarter: 2010Q3

REPORT INFORMATION
  Report Type: 
  Country: None (occurrence: None)
  Receive Date: 20100701
  Receipt Date: 20100615
  Transmission Date: 20110219
  Serious: Yes (Hospitalization, Other)
  Sender: FDA-Public Use
  Company Number: US-BAYER-201018537NA

PATIENT
  Age: 38 Year
  Sex: Female

DRUGS (18)
  1. YAZ [Suspect]
     Indication: CONTRACEPTION
     Route: 048
     Dates: start: 20050320, end: 20080614
  2. YASMIN [Suspect]
     Indication: CONTRACEPTION
     Dates: start: 20050320, end: 20080614
  3. OCELLA [Suspect]
     Indication: CONTRACEPTION
     Route: 048
     Dates: start: 20080703, end: 20081122
  4. SPIRONOLACTONE [Concomitant]
  5. VITAMIN C [Concomitant]
  6. IBUPROFEN [Concomitant]
     Dates: start: 19950101
  7. POTASSIUM [Concomitant]
  8. WELLBUTRIN XL [Concomitant]
     Indication: DEPRESSION
     Dates: start: 20050101
  9. SYNTHROID [Concomitant]
     Indication: HYPOTHYROIDISM
     Dates: start: 19950101
  10. VALTREX [Concomitant]
  11. AMNESTEEM [Concomitant]
  12. BUPROPION HCL [Concomitant]
  13. LEVOTHYROXINE SODIUM [Concomitant]
  14. LEVOTHYROXINE SODIUM [Concomitant]
  15. PHENTERMINE [Concomitant]
  16. THYROID TAB [Concomitant]
  17. ADVIL LIQUI-GELS [Concomitant]
  18. PERCOCET-5 [Concomitant]

REACTIONS (5)
  - ABDOMINAL PAIN UPPER [None]
  - CHOLECYSTITIS [None]
  - CHOLELITHIASIS [None]
  - NAUSEA [None]
  - VOMITING [None]
